FAERS Safety Report 13337820 (Version 2)
Quarter: 2017Q1

REPORT INFORMATION
  Report Type: Spontaneous
  Country: JP (occurrence: JP)
  Receive Date: 20170315
  Receipt Date: 20170330
  Transmission Date: 20170428
  Serious: Yes (Life-Threatening, Hospitalization, Other)
  Sender: FDA-Public Use
  Company Number: JP-ELI_LILLY_AND_COMPANY-JP201612010607

PATIENT
  Age: 64 Year
  Sex: Male
  Weight: 60 kg

DRUGS (2)
  1. ERBITUX [Suspect]
     Active Substance: CETUXIMAB
     Indication: SQUAMOUS CELL CARCINOMA OF THE HYPOPHARYNX
     Dosage: 560 MG/M2, WEEKLY (1/W)
     Route: 042
     Dates: start: 20161031, end: 20161031
  2. ERBITUX [Suspect]
     Active Substance: CETUXIMAB
     Dosage: 350 MG/M2, WEEKLY (1/W)
     Route: 042
     Dates: start: 20161107, end: 20161205

REACTIONS (3)
  - Interstitial lung disease [Recovering/Resolving]
  - Stomatitis [Recovering/Resolving]
  - Pulmonary alveolar haemorrhage [Recovering/Resolving]

NARRATIVE: CASE EVENT DATE: 2016
